FAERS Safety Report 16736101 (Version 2)
Quarter: 2019Q3

REPORT INFORMATION
  Report Type: Spontaneous
  Country: US (occurrence: US)
  Receive Date: 20190823
  Receipt Date: 20190826
  Transmission Date: 20191005
  Serious: Yes (Other)
  Sender: FDA-Public Use
  Company Number: US-PFIZER INC-2019358999

PATIENT
  Sex: Female

DRUGS (1)
  1. CAVERJECT [Suspect]
     Active Substance: ALPROSTADIL
     Dosage: UNK

REACTIONS (4)
  - Haemorrhage [Unknown]
  - Off label use [Unknown]
  - Cerebrovascular accident [Unknown]
  - Product use issue [Unknown]
